FAERS Safety Report 19929589 (Version 1)
Quarter: 2021Q4

REPORT INFORMATION
  Report Type: Spontaneous
  Country: PT (occurrence: PT)
  Receive Date: 20211007
  Receipt Date: 20211007
  Transmission Date: 20220303
  Serious: Yes (Hospitalization, Other)
  Sender: FDA-Public Use
  Company Number: PT-002147023-NVSC2021PT109868

PATIENT
  Age: 56 Year
  Sex: Female
  Weight: 53.5 kg

DRUGS (6)
  1. FINGOLIMOD [Suspect]
     Active Substance: FINGOLIMOD
     Indication: Product used for unknown indication
     Dosage: UNK
     Route: 065
     Dates: start: 20171020
  2. FINGOLIMOD [Suspect]
     Active Substance: FINGOLIMOD
     Dosage: 4 DOSAGE FORM, QW
     Route: 065
     Dates: start: 20180319, end: 20180720
  3. FINGOLIMOD [Suspect]
     Active Substance: FINGOLIMOD
     Dosage: 0.5 MILLIGRAM, QD
     Route: 065
     Dates: start: 20130320
  4. FINGOLIMOD [Suspect]
     Active Substance: FINGOLIMOD
     Dosage: UNK
     Route: 065
  5. FINGOLIMOD [Suspect]
     Active Substance: FINGOLIMOD
     Dosage: 3 DOSAGE FORM, QW
     Route: 065
  6. FINGOLIMOD [Suspect]
     Active Substance: FINGOLIMOD
     Dosage: 5 DOSAGE FORM, QW
     Route: 065
     Dates: start: 20181024

REACTIONS (6)
  - Micturition urgency [Recovered/Resolved]
  - Sensory disturbance [Recovered/Resolved]
  - Lymphopenia [Recovering/Resolving]
  - Multiple sclerosis relapse [Recovering/Resolving]
  - Immune reconstitution inflammatory syndrome [Unknown]
  - Visual impairment [Recovering/Resolving]

NARRATIVE: CASE EVENT DATE: 20200106
